FAERS Safety Report 6484303-5 (Version None)
Quarter: 2009Q4

REPORT INFORMATION
  Report Type: 
  Country: None (occurrence: None)
  Receive Date: 20091203
  Receipt Date: 20091125
  Transmission Date: 20100525
  Serious: Yes (Hospitalization)
  Sender: FDA-Public Use
  Company Number: 2009SP038100

PATIENT
  Age: 52 Year
  Sex: Male

DRUGS (6)
  1. BETAMATHASONE DIPROPIONATE [Suspect]
     Indication: ECZEMA
     Dates: end: 20091101
  2. ELOCON [Suspect]
     Indication: DRUG USE FOR UNKNOWN INDICATION
  3. TRIAMCINOLONE ACETONIDE [Concomitant]
  4. TELFAST [Concomitant]
  5. DIAZEPAM [Concomitant]
  6. ESCITALOPRAM OXALATE [Concomitant]

REACTIONS (4)
  - CONTUSION [None]
  - CRYING [None]
  - RASH MACULO-PAPULAR [None]
  - SKIN ATROPHY [None]
